FAERS Safety Report 8789305 (Version 1)
Quarter: 2012Q4

REPORT INFORMATION
  Report Type: Spontaneous
  Country: US (occurrence: None)
  Receive Date: 20120905
  Receipt Date: 20120905
  Transmission Date: 20130627
  Serious: Yes (Hospitalization)
  Sender: FDA-Public Use
  Company Number: 100914-005871

PATIENT
  Age: 23 Year
  Sex: Female

DRUGS (2)
  1. PROACTIV RENEWING CLEANSER [Suspect]
     Indication: ACNE
     Dosage: Once dermal
     Dates: start: 20100816
  2. VITAMIN D+C DAILY [Concomitant]

REACTIONS (2)
  - Application site swelling [None]
  - Application site haemorrhage [None]
